FAERS Safety Report 8432490-1 (Version None)
Quarter: 2012Q2

REPORT INFORMATION
  Report Type: 
  Country: None (occurrence: None)
  Receive Date: 20120613
  Receipt Date: 20120607
  Transmission Date: 20120825
  Serious: Yes (Other)
  Sender: FDA-Public Use
  Company Number: PHHY2012CA021749

PATIENT
  Sex: Female

DRUGS (3)
  1. GILENYA [Suspect]
     Indication: RELAPSING-REMITTING MULTIPLE SCLEROSIS
     Dosage: 0.5 MG, QD
     Route: 048
     Dates: start: 20120308
  2. LYRICA [Concomitant]
  3. ADVIL [Concomitant]

REACTIONS (14)
  - DRY SKIN [None]
  - HEADACHE [None]
  - ABDOMINAL DISCOMFORT [None]
  - STRESS [None]
  - HYPOAESTHESIA EYE [None]
  - FATIGUE [None]
  - HYPOAESTHESIA [None]
  - ARTHRALGIA [None]
  - PARAESTHESIA [None]
  - LIMB DISCOMFORT [None]
  - CHILLS [None]
  - AMNESIA [None]
  - MULTIPLE SCLEROSIS RELAPSE [None]
  - EMOTIONAL DISORDER [None]
